FAERS Safety Report 16067470 (Version 1)
Quarter: 2019Q1

REPORT INFORMATION
  Report Type: Spontaneous
  Country: US (occurrence: US)
  Receive Date: 20190313
  Receipt Date: 20190313
  Transmission Date: 20190418
  Serious: Yes (Other)
  Sender: FDA-Public Use
  Company Number: US-ELITE LABORATORIES INC.-2019ELT00002

PATIENT
  Age: 54 Year
  Sex: Female
  Weight: 65.32 kg

DRUGS (5)
  1. PHENTERMINE HYDROCHLORIDE. [Suspect]
     Active Substance: PHENTERMINE HYDROCHLORIDE
     Indication: WEIGHT DECREASED
     Dosage: 37.5 MG, 1X/DAY
     Route: 048
     Dates: start: 2016
  2. PNEUMOVAX 23 [Suspect]
     Active Substance: PNEUMOCOCCAL VACCINE, POLYVALENT 23
     Indication: PROPHYLAXIS
     Dosage: INJECTED ONCE IN HER LEFT ARM
     Dates: start: 20180406, end: 20180406
  3. PREDNISONE. [Concomitant]
     Active Substance: PREDNISONE
     Dosage: ^TAKING ON AND OFF FOR YEARS^
     Route: 048
  4. PREVNAR 13 [Suspect]
     Active Substance: PNEUMOCOCCAL 13-VALENT CONJUGATE VACCINE
     Indication: PROPHYLAXIS
     Dosage: INJECTED ONCE IN HER RIGHT ARM
     Dates: start: 20180413, end: 20180413
  5. PREDNISONE. [Concomitant]
     Active Substance: PREDNISONE
     Dosage: 5 MG, 1X/DAY
     Route: 048
     Dates: start: 201710

REACTIONS (13)
  - Pain in jaw [Not Recovered/Not Resolved]
  - Lymphadenopathy [Unknown]
  - Fatigue [Not Recovered/Not Resolved]
  - Off label use [Not Recovered/Not Resolved]
  - Therapeutic response unexpected [Not Recovered/Not Resolved]
  - Ear pain [Not Recovered/Not Resolved]
  - Neck pain [Not Recovered/Not Resolved]
  - Drug ineffective [Not Recovered/Not Resolved]
  - Headache [Recovering/Resolving]
  - Pyrexia [Recovered/Resolved]
  - Cardiac failure congestive [Not Recovered/Not Resolved]
  - Chest X-ray abnormal [Not Recovered/Not Resolved]
  - Malaise [Unknown]

NARRATIVE: CASE EVENT DATE: 2015
